FAERS Safety Report 18288055 (Version 1)
Quarter: 2020Q3

REPORT INFORMATION
  Report Type: Spontaneous
  Country: US (occurrence: US)
  Receive Date: 20200919
  Receipt Date: 20200919
  Transmission Date: 20201103
  Serious: Yes (Hospitalization)
  Sender: FDA-Public Use
  Company Number: None

PATIENT
  Sex: Male
  Weight: 150.5 kg

DRUGS (4)
  1. ELOXATIN [Suspect]
     Active Substance: OXALIPLATIN
     Dates: end: 20191002
  2. 5?FLUOROURACIL (5?FU) (19893) [Suspect]
     Active Substance: FLUOROURACIL
     Dates: end: 20191002
  3. BEVACIZUMAB (RHUMAB VEGF) [Concomitant]
     Active Substance: BEVACIZUMAB
     Dates: end: 20190918
  4. LEUCOVORIN CALCIUM. [Concomitant]
     Active Substance: LEUCOVORIN CALCIUM
     Dates: end: 20191002

REACTIONS (9)
  - Failure to thrive [None]
  - Pain [None]
  - Vomiting [None]
  - Asthenia [None]
  - Abscess limb [None]
  - Abdominal pain [None]
  - Soft tissue infection [None]
  - Diarrhoea haemorrhagic [None]
  - Nausea [None]

NARRATIVE: CASE EVENT DATE: 20191022
